FAERS Safety Report 18752925 (Version 3)
Quarter: 2021Q3

REPORT INFORMATION
  Report Type: Spontaneous
  Country: US (occurrence: US)
  Receive Date: 20210118
  Receipt Date: 20210921
  Transmission Date: 20211014
  Serious: Yes (Other)
  Sender: FDA-Public Use
  Company Number: US-JNJFOC-20210120244

PATIENT
  Age: 5 Decade
  Sex: Female

DRUGS (5)
  1. ELMIRON [Suspect]
     Active Substance: PENTOSAN POLYSULFATE SODIUM
     Route: 048
     Dates: start: 20050301, end: 20181101
  2. NORTRIPTYLINE [Concomitant]
     Active Substance: NORTRIPTYLINE
     Indication: GENITAL PAIN
     Route: 065
     Dates: start: 20000101
  3. ELMIRON [Suspect]
     Active Substance: PENTOSAN POLYSULFATE SODIUM
     Indication: CYSTITIS INTERSTITIAL
     Route: 048
     Dates: start: 2003, end: 201810
  4. ELMIRON [Suspect]
     Active Substance: PENTOSAN POLYSULFATE SODIUM
     Indication: PAIN
     Route: 048
     Dates: start: 20010401, end: 200502
  5. VERAPAMIL [Concomitant]
     Active Substance: VERAPAMIL HYDROCHLORIDE
     Indication: PALPITATIONS
     Route: 065
     Dates: start: 20080101

REACTIONS (1)
  - Maculopathy [Unknown]

NARRATIVE: CASE EVENT DATE: 2018
